FAERS Safety Report 8573792-8 (Version None)
Quarter: 2012Q2

REPORT INFORMATION
  Report Type: 
  Country: None (occurrence: None)
  Receive Date: 20120423
  Receipt Date: 20101019
  Transmission Date: 20120825
  Serious: Yes (Other)
  Sender: FDA-Public Use
  Company Number: PHHY2010US27255

PATIENT
  Age: 74 Year
  Sex: Male

DRUGS (6)
  1. COZAAR [Concomitant]
  2. EXJADE [Suspect]
     Indication: MYELODYSPLASTIC SYNDROME
     Dosage: 20 MG PER KG PER DAY,ORAL : 500MG/DAY : 1000 MG PER DAY,ORAL :1000 MG PER DAY,ORAL :1500 MG, QD,ORAL
     Route: 048
     Dates: start: 20090908, end: 20100406
  3. EXJADE [Suspect]
     Indication: IRON OVERLOAD
     Dosage: 20 MG PER KG PER DAY,ORAL : 500MG/DAY : 1000 MG PER DAY,ORAL :1000 MG PER DAY,ORAL :1500 MG, QD,ORAL
     Route: 048
     Dates: start: 20090908, end: 20100406
  4. EXJADE [Suspect]
     Indication: MYELODYSPLASTIC SYNDROME
     Dosage: 20 MG PER KG PER DAY,ORAL : 500MG/DAY : 1000 MG PER DAY,ORAL :1000 MG PER DAY,ORAL :1500 MG, QD,ORAL
     Route: 048
     Dates: start: 20100422
  5. EXJADE [Suspect]
     Indication: IRON OVERLOAD
     Dosage: 20 MG PER KG PER DAY,ORAL : 500MG/DAY : 1000 MG PER DAY,ORAL :1000 MG PER DAY,ORAL :1500 MG, QD,ORAL
     Route: 048
     Dates: start: 20100422
  6. HYDROCHLOROTHIAZIDE [Concomitant]

REACTIONS (1)
  - RENAL DISORDER [None]
